FAERS Safety Report 4638283-5 (Version None)
Quarter: 2005Q2

REPORT INFORMATION
  Report Type: 
  Country: None (occurrence: None)
  Receive Date: 20050418
  Receipt Date: 20050406
  Transmission Date: 20051028
  Serious: Yes (Other)
  Sender: FDA-Public Use
  Company Number: 200510610BWH

PATIENT
  Sex: Male

DRUGS (5)
  1. CIPRO [Suspect]
     Indication: NASOPHARYNGITIS
     Dosage: ORAL
     Route: 048
     Dates: start: 20020101
  2. LISINOPRIL [Concomitant]
  3. HYDROCHLOROTHIAZIDE [Concomitant]
  4. VITAMINS [Concomitant]
  5. AVARO [Concomitant]

REACTIONS (3)
  - DYSSTASIA [None]
  - MUSCLE ATROPHY [None]
  - MYALGIA [None]
